FAERS Safety Report 19397800 (Version 3)
Quarter: 2021Q3

REPORT INFORMATION
  Report Type: Spontaneous
  Country: JP (occurrence: JP)
  Receive Date: 20210610
  Receipt Date: 20210810
  Transmission Date: 20211014
  Serious: Yes (Death)
  Sender: FDA-Public Use
  Company Number: NVSJ2021JP008775

PATIENT
  Age: 82 Year
  Sex: Female

DRUGS (9)
  1. ENTRESTO [Suspect]
     Active Substance: SACUBITRIL\VALSARTAN
     Indication: CARDIAC FAILURE CONGESTIVE
  2. CLOPIDOGREL [Concomitant]
     Active Substance: CLOPIDOGREL BISULFATE
     Indication: CEREBRAL INFARCTION
     Dosage: 75 MG, QD
     Route: 048
     Dates: start: 20180427, end: 20201120
  3. FLUNITRAZEPAM [Concomitant]
     Active Substance: FLUNITRAZEPAM
     Indication: INSOMNIA
     Dosage: 1 MG, QD
     Route: 048
     Dates: start: 20180813, end: 20201120
  4. ENTRESTO [Suspect]
     Active Substance: SACUBITRIL\VALSARTAN
     Indication: HYPERTENSIVE HEART DISEASE
     Dosage: 50 MG
     Route: 048
     Dates: start: 20201116, end: 20201118
  5. SAMSCA [Concomitant]
     Active Substance: TOLVAPTAN
     Indication: CHRONIC KIDNEY DISEASE
     Dosage: 7.5 MG, QD
     Route: 048
     Dates: start: 20201012, end: 20201120
  6. PREDONINE [Concomitant]
     Active Substance: PREDNISOLONE
     Indication: RHEUMATIC DISORDER
     Dosage: 5 MG, QD
     Route: 048
     Dates: start: 20180420
  7. ONEALFA [Concomitant]
     Active Substance: ALFACALCIDOL
     Indication: OSTEOPOROSIS
     Dosage: 1.0 UG, QD
     Route: 048
     Dates: start: 20201117
  8. FEBURIC [Concomitant]
     Active Substance: FEBUXOSTAT
     Indication: HYPERURICAEMIA
     Dosage: 10 MG, QD
     Route: 048
     Dates: start: 20150721
  9. BISOPROLOL FUMERATE [Concomitant]
     Active Substance: BISOPROLOL FUMARATE
     Indication: HYPERTENSION
     Dosage: 2.5 MG, QD
     Route: 048
     Dates: start: 20200831, end: 20201120

REACTIONS (14)
  - Somnolence [Fatal]
  - Peripheral coldness [Fatal]
  - Asthenia [Fatal]
  - Decreased appetite [Fatal]
  - Depressed level of consciousness [Fatal]
  - Cardiac failure [Fatal]
  - Urine output decreased [Fatal]
  - Blood pressure decreased [Fatal]
  - Oedema peripheral [Fatal]
  - Pulse pressure decreased [Fatal]
  - Product use in unapproved indication [Unknown]
  - Cyanosis [Fatal]
  - Oliguria [Fatal]
  - Pleural effusion [Fatal]

NARRATIVE: CASE EVENT DATE: 20201117
